FAERS Safety Report 5162832-4 (Version None)
Quarter: 2006Q4

REPORT INFORMATION
  Report Type: 
  Country: None (occurrence: None)
  Receive Date: 20061201
  Receipt Date: 20010115
  Transmission Date: 20070319
  Serious: Yes (Disabling)
  Sender: FDA-Public Use
  Company Number: FR-GLAXOSMITHKLINE-B0096655A

PATIENT
  Age: 2 Month
  Sex: Female
  Weight: 2.8 kg

DRUGS (5)
  1. ZIDOVUDINE [Suspect]
     Indication: HUMAN IMMUNODEFICIENCY VIRUS TRANSMISSION
     Route: 048
     Dates: start: 19980104
  2. LAMIVUDINE [Suspect]
     Indication: HUMAN IMMUNODEFICIENCY VIRUS TRANSMISSION
     Route: 048
     Dates: start: 19980104
  3. ZIDOVUDINE [Suspect]
     Route: 048
     Dates: start: 19980104
  4. LAMIVUDINE [Suspect]
     Route: 048
     Dates: start: 19980104
  5. ZIDOVUDINE [Suspect]
     Route: 042
     Dates: start: 19980104, end: 19980104

REACTIONS (13)
  - BLOOD LACTIC ACID INCREASED [None]
  - BLOOD PYRUVIC ACID INCREASED [None]
  - COGNITIVE DISORDER [None]
  - DRUG EXPOSURE DURING PREGNANCY [None]
  - GASTROENTERITIS [None]
  - HEMIPLEGIA [None]
  - HYPOTONIA [None]
  - METABOLIC ACIDOSIS [None]
  - MITOCHONDRIAL CYTOPATHY [None]
  - NECROSIS [None]
  - NERVOUS SYSTEM DISORDER [None]
  - OPISTHOTONUS [None]
  - SPEECH DISORDER [None]
